FAERS Safety Report 14114371 (Version 2)
Quarter: 2018Q4

REPORT INFORMATION
  Report Type: Spontaneous
  Country: US (occurrence: US)
  Receive Date: 20171023
  Receipt Date: 20181120
  Transmission Date: 20190204
  Serious: No
  Sender: FDA-Public Use
  Company Number: US-PFIZER INC-2017452689

PATIENT
  Age: 48 Year
  Sex: Female
  Weight: 68 kg

DRUGS (11)
  1. TESTOSTERONE. [Concomitant]
     Active Substance: TESTOSTERONE
     Dosage: UNK, THREE DAYS A WEEK (APPLICATION TO AFFECTED AREA)
     Route: 061
  2. AKA SYNTHROID [Concomitant]
     Dosage: 100 UG, ONCE DAILY
     Route: 048
  3. CHOLECALCIFEROL [Concomitant]
     Active Substance: CHOLECALCIFEROL
     Dosage: 2000 IU, DAILY
     Route: 048
  4. MINIVELLE [Concomitant]
     Active Substance: ESTRADIOL
     Dosage: 1 DF, TWICE WEEKLY (TO A CLEAN DRY AREA)
     Route: 062
  5. CALCIUM [Concomitant]
     Active Substance: CALCIUM
     Dosage: UNK
     Route: 048
  6. COQ 10 [Concomitant]
     Active Substance: UBIDECARENONE
     Dosage: UNK
     Route: 048
  7. AKA CORTEF [Concomitant]
     Dosage: 20 MG (ONE-AND-A-HALF TABLET OR 15 MG IN THE MORNING AND 5 MG AT 2 TO 3 PM), DAILY
     Route: 048
  8. AKA PROMETRIUM [Concomitant]
     Dosage: 100 MG, DAILY
     Route: 048
  9. GENOTROPIN MQ [Suspect]
     Active Substance: SOMATROPIN
     Indication: GROWTH HORMONE DEFICIENCY
     Dosage: 0.6 MG (0.25 ML), DAILY
     Route: 058
     Dates: start: 2013
  10. LECITHIN [Concomitant]
     Active Substance: LECITHIN
     Dosage: UNK
     Route: 048
  11. ATENOLOL. [Concomitant]
     Active Substance: ATENOLOL
     Indication: PALPITATIONS
     Dosage: UNK

REACTIONS (14)
  - Drug ineffective [Unknown]
  - Fatigue [Unknown]
  - Visual impairment [Unknown]
  - Disturbance in attention [Unknown]
  - Myalgia [Unknown]
  - Low density lipoprotein increased [Unknown]
  - Lymphocyte count increased [Unknown]
  - Asthenia [Unknown]
  - Memory impairment [Unknown]
  - Pain in extremity [Unknown]
  - Hot flush [Unknown]
  - Headache [Unknown]
  - Muscular weakness [Unknown]
  - Blood triglycerides increased [Unknown]

NARRATIVE: CASE EVENT DATE: 20140827
